FAERS Safety Report 20304802 (Version 1)
Quarter: 2022Q1

REPORT INFORMATION
  Report Type: Spontaneous
  Country: US (occurrence: US)
  Receive Date: 20220106
  Receipt Date: 20220106
  Transmission Date: 20220423
  Serious: No
  Sender: FDA-Public Use
  Company Number: US-HERON THERAPEUTICS, INC-HRTX-2021-000699

PATIENT
  Age: 50 Year
  Sex: Female

DRUGS (2)
  1. ZYNRELEF [Suspect]
     Active Substance: BUPIVACAINE\MELOXICAM
     Indication: Bunion operation
     Dosage: UNK UNK, SINGLE
     Route: 026
     Dates: start: 20211104, end: 20211104
  2. NORCO [Concomitant]
     Active Substance: ACETAMINOPHEN\HYDROCODONE BITARTRATE
     Indication: Product used for unknown indication
     Dosage: 325 MILLIGRAM
     Dates: start: 20211104, end: 20211115

REACTIONS (4)
  - Hypersensitivity [Unknown]
  - Rash [Unknown]
  - Peripheral swelling [Unknown]
  - Erythema [Unknown]

NARRATIVE: CASE EVENT DATE: 20211105
